FAERS Safety Report 9406979 (Version 1)
Quarter: 2013Q3

REPORT INFORMATION
  Report Type: Spontaneous
  Country: US (occurrence: US)
  Receive Date: 20130718
  Receipt Date: 20130718
  Transmission Date: 20140515
  Serious: No
  Sender: FDA-Public Use
  Company Number: US-PFIZER INC-2013207387

PATIENT
  Sex: Male

DRUGS (1)
  1. TOVIAZ [Suspect]
     Indication: URINARY INCONTINENCE
     Dosage: UNK, 1X/DAY
     Route: 048
     Dates: start: 201307

REACTIONS (3)
  - Wrong technique in drug usage process [Unknown]
  - Constipation [Not Recovered/Not Resolved]
  - Dry throat [Not Recovered/Not Resolved]
